FAERS Safety Report 6823647-1 (Version None)
Quarter: 2010Q3

REPORT INFORMATION
  Report Type: 
  Country: None (occurrence: None)
  Receive Date: 20100708
  Receipt Date: 20060815
  Transmission Date: 20110219
  Serious: No
  Sender: FDA-Public Use
  Company Number: US-PFIZER INC-2006102477

PATIENT
  Sex: Male
  Weight: 102.1 kg

DRUGS (3)
  1. CHANTIX [Suspect]
     Indication: SMOKING CESSATION THERAPY
     Dates: start: 20060801
  2. TOPROL-XL [Concomitant]
  3. CELEBREX [Concomitant]

REACTIONS (1)
  - DRUG INEFFECTIVE [None]
